FAERS Safety Report 20344837 (Version 2)
Quarter: 2022Q1

REPORT INFORMATION
  Report Type: Spontaneous
  Country: US (occurrence: US)
  Receive Date: 20220118
  Receipt Date: 20220211
  Transmission Date: 20220424
  Serious: Yes (Disabling, Other)
  Sender: FDA-Public Use
  Company Number: US-BAYER-2022A004743

PATIENT
  Age: 32 Year
  Sex: Female

DRUGS (1)
  1. MIRENA [Suspect]
     Active Substance: LEVONORGESTREL
     Dosage: 20?G/DAY
     Route: 015
     Dates: start: 201411, end: 20200413

REACTIONS (2)
  - Infertility female [Not Recovered/Not Resolved]
  - Endometrial atrophy [Not Recovered/Not Resolved]

NARRATIVE: CASE EVENT DATE: 20200801
